FAERS Safety Report 12185562 (Version 1)
Quarter: 2016Q1

REPORT INFORMATION
  Report Type: Spontaneous
  Country: US (occurrence: US)
  Receive Date: 20160316
  Receipt Date: 20160316
  Transmission Date: 20160526
  Serious: No
  Sender: FDA-Public Use
  Company Number: US-ASTRAZENECA-2009BM00465

PATIENT
  Age: 35 Year
  Sex: Female
  Weight: 160.5 kg

DRUGS (11)
  1. EXENATIDE [Suspect]
     Active Substance: EXENATIDE
     Indication: TYPE 2 DIABETES MELLITUS
     Route: 065
  2. NITROFURANTOIN. [Suspect]
     Active Substance: NITROFURANTOIN
     Indication: URINARY TRACT INFECTION
     Route: 065
  3. METOPROLOL TARTRATE. [Suspect]
     Active Substance: METOPROLOL TARTRATE
     Indication: HYPERTENSION
     Dosage: 100 MG-PRECONCEPTION.0,14,35 AND 38 WEEK
     Route: 048
  4. MONOPRIL [Suspect]
     Active Substance: FOSINOPRIL SODIUM
     Indication: HYPERTENSION
     Dosage: 80MG PRECONCEPTION,0 WEEK, AND 14 WEEK
     Route: 065
  5. ATORVASTATIN [Suspect]
     Active Substance: ATORVASTATIN
     Route: 065
  6. INSULIN GLARGINE [Suspect]
     Active Substance: INSULIN GLARGINE
     Indication: TYPE 2 DIABETES MELLITUS
     Dosage: 32 UNITS-PRECONCEPTION  34-0 WEEK  38-14 WEEK  113-22 WEEK  220-29 WEEK  247-35 WEEK  257-38 WEEK
     Route: 065
  7. METFORMIN [Suspect]
     Active Substance: METFORMIN HYDROCHLORIDE
     Dosage: NON-AZ
     Route: 065
  8. ASPIRIN. [Suspect]
     Active Substance: ASPIRIN
  9. METOPROLOL TARTRATE. [Suspect]
     Active Substance: METOPROLOL TARTRATE
     Indication: HYPERTENSION
     Dosage: 50 MG- 22 AND 29 WEEK
     Route: 048
  10. ROSIGLITAZONE [Suspect]
     Active Substance: ROSIGLITAZONE
     Route: 065
  11. DILTIAZEM [Concomitant]
     Active Substance: DILTIAZEM
     Indication: HYPERTENSION
     Dosage: 240MG 35 AND 38 WEEK
     Route: 065

REACTIONS (1)
  - Exposure during pregnancy [Unknown]
